FAERS Safety Report 5158476-0 (Version None)
Quarter: 2006Q4

REPORT INFORMATION
  Report Type: 
  Country: None (occurrence: None)
  Receive Date: 20061116
  Receipt Date: 20061107
  Transmission Date: 20070319
  Serious: Yes (Hospitalization)
  Sender: FDA-Public Use
  Company Number: GXKR2006GB07145

PATIENT
  Sex: Male

DRUGS (3)
  1. CO-CODAMOL (NGX) (ACETAMINOPHEN (PARACETAMOL), CODEINE PHOSPHATE) [Suspect]
  2. SEROXAT ^SMITHKLINE BEECHAM^ (PAROXETINE HYDROCHLORIDE) 20 MG [Suspect]
     Dosage: 20 MG
  3. .... [Concomitant]

REACTIONS (8)
  - APPETITE DISORDER [None]
  - DISTURBANCE IN ATTENTION [None]
  - DRUG WITHDRAWAL SYNDROME [None]
  - HEADACHE [None]
  - INTENTIONAL OVERDOSE [None]
  - NIGHTMARE [None]
  - POOR QUALITY SLEEP [None]
  - SUICIDAL IDEATION [None]
